FAERS Safety Report 10337143 (Version 5)
Quarter: 2014Q3

REPORT INFORMATION
  Report Type: Spontaneous
  Country: JP (occurrence: JP)
  Receive Date: 20140723
  Receipt Date: 20140918
  Transmission Date: 20150326
  Serious: Yes (Hospitalization)
  Sender: FDA-Public Use
  Company Number: JP-ASTRAZENECA-2014SE52248

PATIENT
  Age: 43 Year
  Sex: Female
  Weight: 58 kg

DRUGS (12)
  1. SYMBICORT [Suspect]
     Active Substance: BUDESONIDE\FORMOTEROL FUMARATE DIHYDRATE
     Indication: ASTHMA
     Dosage: 2 DF, DAILY
     Route: 055
     Dates: start: 20140717, end: 20140801
  2. AMOXAN [Concomitant]
     Active Substance: AMOXAPINE
     Indication: DEPRESSION
     Route: 048
  3. SYMBICORT [Suspect]
     Active Substance: BUDESONIDE\FORMOTEROL FUMARATE DIHYDRATE
     Indication: ASTHMA
     Dosage: 4 DF, TWO TIMES A DAY
     Route: 055
     Dates: start: 201309, end: 201404
  4. NASONEX [Suspect]
     Active Substance: MOMETASONE FUROATE
     Indication: RHINITIS ALLERGIC
     Route: 045
     Dates: start: 201310, end: 20140801
  5. NEXIUM [Concomitant]
     Active Substance: ESOMEPRAZOLE MAGNESIUM
     Indication: GASTRITIS PROPHYLAXIS
     Route: 048
  6. TRAZODONE [Concomitant]
     Active Substance: TRAZODONE HYDROCHLORIDE
     Indication: DEPRESSION
     Route: 048
  7. SYMBICORT [Suspect]
     Active Substance: BUDESONIDE\FORMOTEROL FUMARATE DIHYDRATE
     Indication: ASTHMA
     Dosage: 2-3 DF/DOSE,TWO TIMES A DAY
     Route: 055
     Dates: start: 201404, end: 20140716
  8. PAXIL CR [Concomitant]
     Active Substance: PAROXETINE HYDROCHLORIDE
     Indication: DEPRESSION
     Route: 048
  9. NASONEX [Suspect]
     Active Substance: MOMETASONE FUROATE
     Indication: RHINITIS ALLERGIC
     Route: 045
     Dates: start: 20140806
  10. MONTELUKAST [Concomitant]
     Active Substance: MONTELUKAST SODIUM
     Indication: ASTHMA
     Route: 048
  11. LENDORMIN [Concomitant]
     Active Substance: BROTIZOLAM
     Indication: DEPRESSION
     Route: 048
  12. NAUZELIN [Concomitant]
     Active Substance: DOMPERIDONE
     Indication: GASTRITIS
     Route: 048
     Dates: end: 20140714

REACTIONS (4)
  - Rhinitis allergic [Unknown]
  - Intraocular pressure increased [Unknown]
  - Off label use [Unknown]
  - Adrenal insufficiency [Recovered/Resolved]

NARRATIVE: CASE EVENT DATE: 201310
